FAERS Safety Report 9234890 (Version 3)
Quarter: 2013Q4

REPORT INFORMATION
  Report Type: Spontaneous
  Country: US (occurrence: US)
  Receive Date: 20130416
  Receipt Date: 20131212
  Transmission Date: 20140711
  Serious: Yes (Other)
  Sender: FDA-Public Use
  Company Number: US-TEVA-392642USA

PATIENT
  Age: 29 Year
  Sex: Female
  Weight: 61.29 kg

DRUGS (3)
  1. PARAGARD 380A [Suspect]
     Indication: CONTRACEPTION
     Route: 015
     Dates: start: 20120905, end: 20130312
  2. DEPAKOTE [Concomitant]
     Indication: CONVULSION
  3. TOPAMAX [Concomitant]
     Indication: CONVULSION

REACTIONS (4)
  - Pregnancy with contraceptive device [Unknown]
  - Drug ineffective [Unknown]
  - Device expulsion [Recovered/Resolved]
  - Amenorrhoea [Not Recovered/Not Resolved]
